FAERS Safety Report 8595091-0 (Version None)
Quarter: 2012Q3

REPORT INFORMATION
  Report Type: 
  Country: None (occurrence: None)
  Receive Date: 20120815
  Receipt Date: 20120806
  Transmission Date: 20120928
  Serious: Yes (Other)
  Sender: FDA-Public Use
  Company Number: JP-NOVOPROD-317165

PATIENT
  Age: 18 Year
  Sex: Male
  Weight: 59 kg

DRUGS (1)
  1. NORDITROPIN [Suspect]
     Indication: GROWTH HORMONE DEFICIENCY
     Dosage: 1.0-1.3 MG
     Route: 058
     Dates: start: 20071227, end: 20090912

REACTIONS (1)
  - OPTIC NERVE GLIOMA [None]
